FAERS Safety Report 12633738 (Version 2)
Quarter: 2016Q3

REPORT INFORMATION
  Report Type: Report from Study
  Country: US (occurrence: US)
  Receive Date: 20160809
  Receipt Date: 20160914
  Transmission Date: 20161109
  Serious: Yes (Death, Hospitalization, Other)
  Sender: FDA-Public Use
  Company Number: US-009507513-1608USA003099

PATIENT
  Age: 31 Year
  Sex: Female

DRUGS (1)
  1. KEYTRUDA [Suspect]
     Active Substance: PEMBROLIZUMAB
     Dosage: 150 MG, Q3W
     Dates: start: 20160708

REACTIONS (6)
  - Product quality issue [Unknown]
  - Hypotension [Unknown]
  - Hyperkalaemia [Unknown]
  - Hepatic failure [Fatal]
  - Hyponatraemia [Unknown]
  - Nephropathy [Unknown]

NARRATIVE: CASE EVENT DATE: 201607
